FAERS Safety Report 21835650 (Version 1)
Quarter: 2023Q1

REPORT INFORMATION
  Report Type: Spontaneous
  Country: US (occurrence: US)
  Receive Date: 20230109
  Receipt Date: 20230109
  Transmission Date: 20230418
  Serious: Yes (Hospitalization)
  Sender: FDA-Public Use
  Company Number: US-SA-2022SA521376

PATIENT
  Age: 71 Year
  Sex: Male

DRUGS (4)
  1. ALPROLIX [Suspect]
     Active Substance: EFTRENONACOG ALFA
     Indication: Prophylaxis
     Dosage: 5974 U, QW
     Route: 042
     Dates: start: 202201
  2. ALPROLIX [Suspect]
     Active Substance: EFTRENONACOG ALFA
     Indication: Prophylaxis
     Dosage: 5974 U, QW
     Route: 042
     Dates: start: 202201
  3. ALPROLIX [Suspect]
     Active Substance: EFTRENONACOG ALFA
     Indication: Factor VIII deficiency
     Dosage: 5974 U (5376-6571) SLOW IV PUSH, QW
     Route: 042
     Dates: start: 202211
  4. ALPROLIX [Suspect]
     Active Substance: EFTRENONACOG ALFA
     Indication: Factor VIII deficiency
     Dosage: 5974 U (5376-6571) SLOW IV PUSH, QW
     Route: 042
     Dates: start: 202211

REACTIONS (2)
  - Hospitalisation [Recovered/Resolved]
  - Product use in unapproved indication [Unknown]

NARRATIVE: CASE EVENT DATE: 20220101
